FAERS Safety Report 11575357 (Version 6)
Quarter: 2021Q4

REPORT INFORMATION
  Report Type: Report from Study
  Country: US (occurrence: US)
  Receive Date: 20150930
  Receipt Date: 20211230
  Transmission Date: 20220303
  Serious: No
  Sender: FDA-Public Use
  Company Number: US-BAYER-2015-277912

PATIENT
  Age: 64 Year
  Sex: Male

DRUGS (6)
  1. STIVARGA [Suspect]
     Active Substance: REGORAFENIB
     Indication: Rectosigmoid cancer stage IV
     Dosage: DAILY DOSE 120 MG
     Route: 048
     Dates: start: 20150519, end: 20150716
  2. STIVARGA [Suspect]
     Active Substance: REGORAFENIB
     Indication: Metastases to liver
     Dosage: DAILY DOSE 120 MG (21 DAYS AND 7 DAYS OFF)
     Route: 048
     Dates: end: 2016
  3. STIVARGA [Suspect]
     Active Substance: REGORAFENIB
     Indication: Metastases to biliary tract
  4. ENSURE [MINERALS NOS,VITAMINS NOS] [Concomitant]
     Indication: Nutritional supplementation
  5. CANNABIS SATIVA SUBSP. INDICA TOP [Concomitant]
     Active Substance: CANNABIS SATIVA SUBSP. INDICA TOP
     Indication: Nausea
  6. CANNABIS SATIVA SUBSP. INDICA TOP [Concomitant]
     Active Substance: CANNABIS SATIVA SUBSP. INDICA TOP
     Indication: Prophylaxis

REACTIONS (8)
  - Dizziness [Not Recovered/Not Resolved]
  - Restlessness [None]
  - Insomnia [Not Recovered/Not Resolved]
  - Neuralgia [Not Recovered/Not Resolved]
  - Pain in extremity [Recovering/Resolving]
  - Product dose omission issue [None]
  - Decreased appetite [Not Recovered/Not Resolved]
  - Weight decreased [Not Recovered/Not Resolved]

NARRATIVE: CASE EVENT DATE: 20150520
